FAERS Safety Report 13272971 (Version 1)
Quarter: 2017Q1

REPORT INFORMATION
  Report Type: Spontaneous
  Country: US (occurrence: US)
  Receive Date: 20170227
  Receipt Date: 20170227
  Transmission Date: 20170428
  Serious: No
  Sender: FDA-Public Use
  Company Number: None

PATIENT
  Age: 58 Year
  Sex: Female

DRUGS (2)
  1. IBRANCE [Suspect]
     Active Substance: PALBOCICLIB
     Indication: BREAST CANCER FEMALE
     Dosage: 125MG QD 21 DAYS ON PO
     Route: 048
  2. IBRANCE [Suspect]
     Active Substance: PALBOCICLIB
     Indication: BREAST CANCER IN SITU
     Dosage: 125MG QD 21 DAYS ON PO
     Route: 048

REACTIONS (3)
  - Dehydration [None]
  - Diarrhoea [None]
  - Hepatic cancer [None]

NARRATIVE: CASE EVENT DATE: 20170214
